FAERS Safety Report 7534097-7 (Version None)
Quarter: 2011Q2

REPORT INFORMATION
  Report Type: 
  Country: None (occurrence: None)
  Receive Date: 20110608
  Receipt Date: 20060925
  Transmission Date: 20111010
  Serious: Yes (Hospitalization)
  Sender: FDA-Public Use
  Company Number: PHEH2006US07569

PATIENT
  Sex: Female

DRUGS (5)
  1. ISOSORBIDE [Concomitant]
     Dosage: UNK
  2. DIGOXIN [Concomitant]
     Dosage: UNK
  3. EXJADE [Suspect]
     Indication: THALASSAEMIA
     Dosage: UNK, UNK
     Route: 048
  4. COLCHICINE [Concomitant]
     Dosage: UNK
  5. NORVASC [Concomitant]
     Dosage: UNK

REACTIONS (2)
  - ASTHENIA [None]
  - BACTERIAL DIARRHOEA [None]
